FAERS Safety Report 19444622 (Version 2)
Quarter: 2021Q3

REPORT INFORMATION
  Report Type: Spontaneous
  Country: DE (occurrence: DE)
  Receive Date: 20210621
  Receipt Date: 20210709
  Transmission Date: 20211014
  Serious: Yes (Other)
  Sender: FDA-Public Use
  Company Number: DE-MYLANLABS-2021M1035798

PATIENT
  Age: 39 Year
  Sex: Female

DRUGS (25)
  1. ENDOXAN                            /00021101/ [Suspect]
     Active Substance: CYCLOPHOSPHAMIDE
     Indication: CENTRAL NERVOUS SYSTEM LYMPHOMA
     Dosage: 200 MG/M2 BSA OVER 1 HR VIA INFUSION, CYCLIC (CYCLE B, DAY 2 TO 5)
     Route: 042
  2. METHOTREXATE. [Suspect]
     Active Substance: METHOTREXATE
     Dosage: INTRAVENTRICULAR 3 MG, CYCLE C (DAY 3 ? DAY 6)
  3. ARA?C [Suspect]
     Active Substance: CYTARABINE
     Indication: CENTRAL NERVOUS SYSTEM LYMPHOMA
     Dosage: 30 MG INTRAVENTRICULAR, CYCLE C (DAY 7)
  4. ARA?C [Suspect]
     Active Substance: CYTARABINE
     Dosage: 30 MG, CYCLIC (CYCLE A, INTRAVENTRICULAR, DAY 5)
  5. VINDESINE [Suspect]
     Active Substance: VINDESINE
     Indication: CENTRAL NERVOUS SYSTEM LYMPHOMA
     Dosage: 5 MG, CYCLIC (CYCLE C, DAY 1)
     Route: 042
  6. VINCRISTINE SULFATE. [Suspect]
     Active Substance: VINCRISTINE SULFATE
     Dosage: 2 MG, CYCLIC (DAY 1, CYCLE A)
     Route: 042
  7. METHOTREXATE. [Suspect]
     Active Substance: METHOTREXATE
     Dosage: INTRAVENTRICULAR (3 MG), CYCLE A (DAY 1 ? DAY 4)
  8. PREDNISOLONE. [Suspect]
     Active Substance: PREDNISOLONE
     Dosage: 2.5 MG, CYCLIC (INTRAVENTRICULAR, CYCLE C (DAY 3 TO 6)
  9. PREDNISOLONE. [Suspect]
     Active Substance: PREDNISOLONE
     Dosage: 2.5 MG, CYCLIC (INTRAVENTRICULAR, CYCLE A, DAY 1 TO 4)
  10. DEXAMETHASONE. [Suspect]
     Active Substance: DEXAMETHASONE
     Dosage: 20 MG/M2 BSA, CYCLIC (CYCLE C, DAY 1 TO 5)
     Route: 048
  11. ARA?C [Suspect]
     Active Substance: CYTARABINE
     Dosage: 3 G/M2 BSA OVER 3 HR VIA INFUSION (CYCLE C, DAY 1 AND DAY 2)
     Route: 042
  12. PREDNISOLONE. [Suspect]
     Active Substance: PREDNISOLONE
     Indication: CENTRAL NERVOUS SYSTEM LYMPHOMA
     Dosage: 2.5 MG, CYCLIC (INTRAVENTRICULAR, CYCLE B, DAY 1 TO 4)
  13. DEXAMETHASONE. [Suspect]
     Active Substance: DEXAMETHASONE
     Dosage: 10 MG/M2 BSA, CYCLIC (CYCLE B, DAY 1 TO 5)
     Route: 048
  14. ARA?C [Suspect]
     Active Substance: CYTARABINE
     Dosage: 30 MG, CYCLIC (CYCLE B, INTRAVENTRICULAR, DAY 5)
  15. VINCRISTINE SULFATE. [Suspect]
     Active Substance: VINCRISTINE SULFATE
     Indication: CENTRAL NERVOUS SYSTEM LYMPHOMA
     Dosage: 2 MG, CYCLIC (DAY 1, CYCLE B)
     Route: 042
  16. ENDOXAN                            /00021101/ [Suspect]
     Active Substance: CYCLOPHOSPHAMIDE
     Dosage: BSA, CYCLE B (DAY 2, 3, 4, 5)
     Route: 042
  17. DEXAMETHASONE. [Suspect]
     Active Substance: DEXAMETHASONE
     Indication: CENTRAL NERVOUS SYSTEM LYMPHOMA
     Dosage: 10 MG/M2 BSA, CYCLIC (CYCLE A, DAY 1 TO 5)
     Route: 048
  18. METHOTREXATE. [Suspect]
     Active Substance: METHOTREXATE
     Dosage: 5 G/M2 BSA (0.5 G/M2 BSA OVER 30 MIN AND 4.5 G/M2 BSA OVER 23.5 HR VIA INFUSION), CYCLE A, DAY 1
     Route: 042
  19. METHOTREXATE. [Suspect]
     Active Substance: METHOTREXATE
     Dosage: INTRAVENTRICULAR (3 MG), CYCLE B (DAY 1 ?DAY 4)
  20. ARA?C [Suspect]
     Active Substance: CYTARABINE
     Dosage: 3 MG/M2 BSA (CYCLE C, DAY 1 AND 2)
     Route: 042
  21. METHOTREXATE. [Suspect]
     Active Substance: METHOTREXATE
     Dosage: CYCLE C, DAY 3, 4, 5, 6
     Route: 050
  22. MESNA. [Concomitant]
     Active Substance: MESNA
     Indication: CYSTITIS
     Dosage: UNK
  23. METHOTREXATE. [Suspect]
     Active Substance: METHOTREXATE
     Indication: CENTRAL NERVOUS SYSTEM LYMPHOMA
     Dosage: 5 G/M2 BSA (0.5 G/M2 BSA OVER 30 MIN AND 4.5 G/M2 BSA OVER 23.5 HR VIA INFUSION), CYCLE B (DAY 1)
     Route: 042
  24. METHOTREXATE. [Suspect]
     Active Substance: METHOTREXATE
     Indication: PRODUCT USED FOR UNKNOWN INDICATION
     Dosage: CYCLE A AND B, DAY 1, 2, 3, 4
     Route: 050
  25. HOLOXAN [Suspect]
     Active Substance: IFOSFAMIDE
     Indication: CENTRAL NERVOUS SYSTEM LYMPHOMA
     Dosage: 800 MG/M2 BSA OVER 1 HR VIA INFUSION, CYCLIC (CYCLE A, DAY 2 ? DAY 5)
     Route: 042

REACTIONS (4)
  - Leukopenia [Unknown]
  - Thrombocytopenia [Unknown]
  - Alopecia areata [Unknown]
  - Electrolyte imbalance [Unknown]
